FAERS Safety Report 23821869 (Version 2)
Quarter: 2024Q2

REPORT INFORMATION
  Report Type: Spontaneous
  Country: IN (occurrence: IN)
  Receive Date: 20240506
  Receipt Date: 20240531
  Transmission Date: 20240716
  Serious: Yes (Death, Other)
  Sender: FDA-Public Use
  Company Number: IN-PFIZER INC-PV202400057845

PATIENT
  Age: 56 Year
  Sex: Female

DRUGS (1)
  1. LORLATINIB [Suspect]
     Active Substance: LORLATINIB
     Dosage: 100 MG, 1X/DAY
     Route: 048
     Dates: start: 20240216, end: 20240412

REACTIONS (6)
  - Death [Fatal]
  - Loss of consciousness [Unknown]
  - Feeding disorder [Unknown]
  - Mobility decreased [Unknown]
  - Gait inability [Unknown]
  - Blindness [Unknown]

NARRATIVE: CASE EVENT DATE: 20240101
